FAERS Safety Report 5389965-1 (Version None)
Quarter: 2007Q3

REPORT INFORMATION
  Report Type: 
  Country: None (occurrence: None)
  Receive Date: 20070716
  Receipt Date: 20070716
  Transmission Date: 20080115
  Serious: Yes (Other)
  Sender: FDA-Public Use
  Company Number: None

PATIENT
  Sex: Female
  Weight: 47.6277 kg

DRUGS (1)
  1. BONIVA [Suspect]
     Indication: OSTEOPENIA
     Dosage: ONE TABLET ONCE MONTHLY PO
     Route: 048
     Dates: start: 20061215, end: 20070115

REACTIONS (11)
  - ABASIA [None]
  - BLISTER [None]
  - DRUG INEFFECTIVE [None]
  - GROIN PAIN [None]
  - HERNIA [None]
  - IMPAIRED HEALING [None]
  - INFLAMMATION [None]
  - OESOPHAGEAL DISORDER [None]
  - OESOPHAGEAL PAIN [None]
  - SPEECH DISORDER [None]
  - WOUND COMPLICATION [None]
